FAERS Safety Report 8245400-7 (Version None)
Quarter: 2012Q1

REPORT INFORMATION
  Report Type: 
  Country: None (occurrence: None)
  Receive Date: 20120329
  Receipt Date: 20120326
  Transmission Date: 20120608
  Serious: Yes (Death)
  Sender: FDA-Public Use
  Company Number: US-ASTRAZENECA-2012SE06227

PATIENT
  Age: 89 Year
  Sex: Male
  Weight: 69.4 kg

DRUGS (1)
  1. NEXIUM [Suspect]
     Indication: GASTROOESOPHAGEAL REFLUX DISEASE
     Route: 048
     Dates: start: 20100614, end: 20110717

REACTIONS (2)
  - CARDIAC FAILURE CONGESTIVE [None]
  - RESPIRATORY FAILURE [None]
